FAERS Safety Report 6359138-4 (Version None)
Quarter: 2009Q3

REPORT INFORMATION
  Report Type: 
  Country: None (occurrence: None)
  Receive Date: 20090917
  Receipt Date: 20090910
  Transmission Date: 20100115
  Serious: Yes (Other)
  Sender: FDA-Public Use
  Company Number: BR-JNJFOC-20090903627

PATIENT
  Sex: Female

DRUGS (2)
  1. TYLEX [Suspect]
     Indication: INTERVERTEBRAL DISC PROTRUSION
     Route: 065
     Dates: start: 20090908, end: 20090909
  2. DEXAMETHASONE [Concomitant]
     Indication: INTERVERTEBRAL DISC PROTRUSION
     Route: 042

REACTIONS (5)
  - AGITATION [None]
  - BLOOD PRESSURE DECREASED [None]
  - HEADACHE [None]
  - HYPOAESTHESIA [None]
  - NAUSEA [None]
